FAERS Safety Report 6358228-X (Version None)
Quarter: 2009Q3

REPORT INFORMATION
  Report Type: 
  Country: None (occurrence: None)
  Receive Date: 20090916
  Receipt Date: 20090910
  Transmission Date: 20100115
  Serious: Yes (Hospitalization)
  Sender: FDA-Public Use
  Company Number: US-ASTRAZENECA-2009SE11531

PATIENT
  Age: 20580 Day
  Sex: Male
  Weight: 49.9 kg

DRUGS (4)
  1. SYMBICORT [Suspect]
     Indication: CHRONIC OBSTRUCTIVE PULMONARY DISEASE
     Dosage: 640 MCG TOTAL DAILY DOSE
     Route: 055
     Dates: start: 20090817, end: 20090902
  2. CALCIUM WITH VITAMIN D [Concomitant]
  3. DILANTIN [Concomitant]
  4. PHENOBARBITAL TAB [Concomitant]

REACTIONS (3)
  - ABASIA [None]
  - SWOLLEN TONGUE [None]
  - TREMOR [None]
